FAERS Safety Report 9491788 (Version 1)
Quarter: 2013Q3

REPORT INFORMATION
  Report Type: Not Available
  Country: US (occurrence: US)
  Receive Date: 20130919
  Receipt Date: 20130919
  Transmission Date: 20140515
  Serious: No
  Sender: FDA-Public Use
  Company Number: US-LUNDBECK-DKLU1083219

PATIENT
  Sex: Male

DRUGS (2)
  1. SABRIL (TABLET) [Suspect]
     Indication: INFANTILE SPASMS
     Dates: start: 201012, end: 20120627
  2. SABRIL (TABLET) [Suspect]
     Indication: CONVULSION
     Dates: start: 201012, end: 20120627

REACTIONS (1)
  - Drug ineffective [Unknown]
